FAERS Safety Report 12720785 (Version 3)
Quarter: 2016Q4

REPORT INFORMATION
  Report Type: Spontaneous
  Country: JP (occurrence: JP)
  Receive Date: 20160907
  Receipt Date: 20161125
  Transmission Date: 20170207
  Serious: Yes (Other)
  Sender: FDA-Public Use
  Company Number: JP-AMGEN-JPNSP2016118552

PATIENT
  Age: 89 Year
  Sex: Female

DRUGS (16)
  1. PRALIA [Suspect]
     Active Substance: DENOSUMAB
     Indication: PRODUCT USED FOR UNKNOWN INDICATION
     Dosage: 60 MG, Q6MO
     Route: 058
     Dates: start: 20150109, end: 20160708
  2. RHUBARB. [Concomitant]
     Active Substance: RHUBARB
     Dosage: 0.3 G, BID AFTER BREAKFAST AND DINNER
     Route: 048
  3. LOTRIGA [Concomitant]
     Active Substance: OMEGA-3-ACID ETHYL ESTERS
     Dosage: 2 G, QD AFTER DINNER
     Route: 048
  4. POTASSIUM CHLORIDE. [Concomitant]
     Active Substance: POTASSIUM CHLORIDE
     Dosage: 600 MG, QD AFTER DINNER
     Route: 048
  5. SINGULAIR [Concomitant]
     Active Substance: MONTELUKAST SODIUM
     Dosage: 10 MG, QD AFTER DINNER
     Route: 048
  6. MICARDIS [Concomitant]
     Active Substance: TELMISARTAN
     Dosage: 20 MG, QD AFTER BREAKFAST
     Route: 048
  7. OXATOMIDE [Concomitant]
     Active Substance: OXATOMIDE
     Dosage: 30 MG, BID AFTER BREAKFAST AND DINNER
     Route: 065
  8. BIOFERMIN [Concomitant]
     Active Substance: BACILLUS SUBTILIS\LACTOBACILLUS ACIDOPHILUS\STREPTOCOCCUS FAECAIS
     Dosage: 0.3 G, BID AFTER BREAKFAST AND DINNER
     Route: 065
  9. ZOLPIDEM TARTRATE. [Concomitant]
     Active Substance: ZOLPIDEM TARTRATE
     Dosage: 5 MG, QD BEFORE SLEEP
     Route: 048
  10. BENFOTIAMINE [Concomitant]
     Active Substance: BENFOTIAMINE
     Dosage: 25 MG, BID AFTER BREAKFAST AND DINNER
     Route: 048
  11. RABEPRAZOLE NA [Concomitant]
     Active Substance: RABEPRAZOLE SODIUM
     Dosage: 10 MG, QD AFTER BREAKFAST
     Route: 048
  12. RELVAR ELLIPTA [Concomitant]
     Active Substance: FLUTICASONE FUROATE\VILANTEROL TRIFENATATE
     Dosage: 1 DF, QD
     Route: 055
  13. CATALIN [Concomitant]
     Active Substance: PIRENOXINE
     Dosage: UNK, QID
     Route: 047
  14. EDIROL [Concomitant]
     Active Substance: ELDECALCITOL
     Dosage: 0.5 MUG, AFTER BREAKFAST
     Route: 048
  15. LEXAPRO [Concomitant]
     Active Substance: ESCITALOPRAM OXALATE
     Dosage: 10 MG, QD AFTER DINNER
     Route: 048
  16. CELECOX [Concomitant]
     Active Substance: CELECOXIB
     Dosage: 100 MG, QD AFTER BREAKFAST
     Route: 048

REACTIONS (1)
  - Osteonecrosis of jaw [Recovering/Resolving]

NARRATIVE: CASE EVENT DATE: 20160812
